FAERS Safety Report 8005150-9 (Version None)
Quarter: 2011Q4

REPORT INFORMATION
  Report Type: 
  Country: None (occurrence: None)
  Receive Date: 20111223
  Receipt Date: 20111215
  Transmission Date: 20120403
  Serious: Yes (Other)
  Sender: FDA-Public Use
  Company Number: PHEH2011US009695

PATIENT
  Sex: Male

DRUGS (3)
  1. CHEMOTHERAPEUTICS [Concomitant]
  2. EXJADE [Suspect]
  3. EXJADE [Suspect]
     Dosage: 2000 MG, QD
     Route: 048

REACTIONS (6)
  - VISUAL IMPAIRMENT [None]
  - PLATELET COUNT DECREASED [None]
  - HEARING IMPAIRED [None]
  - INFLUENZA [None]
  - SINUSITIS [None]
  - HYPERSENSITIVITY [None]
